FAERS Safety Report 8519210-7 (Version None)
Quarter: 2012Q3

REPORT INFORMATION
  Report Type: 
  Country: None (occurrence: None)
  Receive Date: 20120718
  Receipt Date: 20120711
  Transmission Date: 20120928
  Serious: Yes (Other)
  Sender: FDA-Public Use
  Company Number: CA-CELGENEUS-028-21660-12071337

PATIENT
  Age: 64 Year
  Sex: Female

DRUGS (6)
  1. OMEPRAZOLE (PRISOLEC) [Concomitant]
     Route: 065
  2. PREDNISONE [Concomitant]
     Route: 065
  3. ABRAXANE [Suspect]
     Route: 041
  4. PERINDOPRIL ERBUMINE [Suspect]
     Dosage: 2 MILLIGRAM
     Route: 048
  5. OMEPRAZOLE [Concomitant]
     Route: 065
  6. HERCEPTIN VIALS [Suspect]
     Route: 041

REACTIONS (2)
  - IDIOPATHIC THROMBOCYTOPENIC PURPURA [None]
  - EJECTION FRACTION DECREASED [None]
